FAERS Safety Report 12456601 (Version 14)
Quarter: 2017Q1

REPORT INFORMATION
  Report Type: Report from Study
  Country: US (occurrence: US)
  Receive Date: 20160610
  Receipt Date: 20170317
  Transmission Date: 20170428
  Serious: Yes (Hospitalization, Other)
  Sender: FDA-Public Use
  Company Number: US-SA-2016SA105346

PATIENT
  Age: 43 Year
  Sex: Female

DRUGS (10)
  1. BACLOFEN. [Concomitant]
     Active Substance: BACLOFEN
  2. KEPPRA [Concomitant]
     Active Substance: LEVETIRACETAM
  3. HYDROXYZINE [Concomitant]
     Active Substance: HYDROXYZINE HYDROCHLORIDE
     Dates: start: 2016
  4. RITALIN [Concomitant]
     Active Substance: METHYLPHENIDATE HYDROCHLORIDE
  5. LEMTRADA [Suspect]
     Active Substance: ALEMTUZUMAB
     Indication: MULTIPLE SCLEROSIS
     Route: 041
     Dates: start: 20160523, end: 20160527
  6. AMINOPYRIDINE [Concomitant]
     Active Substance: DALFAMPRIDINE
  7. ACYCLOVIR. [Concomitant]
     Active Substance: ACYCLOVIR
  8. FLUOXETINE [Concomitant]
     Active Substance: FLUOXETINE HYDROCHLORIDE
  9. LIPITOR [Concomitant]
     Active Substance: ATORVASTATIN CALCIUM
  10. ADDERALL [Concomitant]
     Active Substance: AMPHETAMINE ASPARTATE\AMPHETAMINE SULFATE\DEXTROAMPHETAMINE SACCHARATE\DEXTROAMPHETAMINE SULFATE
     Route: 048

REACTIONS (24)
  - Coronary artery disease [Not Recovered/Not Resolved]
  - Pain in jaw [Unknown]
  - Fall [Not Recovered/Not Resolved]
  - Blood pressure increased [Recovered/Resolved]
  - Pneumonia [Unknown]
  - Cough [Not Recovered/Not Resolved]
  - Hypersomnia [Not Recovered/Not Resolved]
  - Heart rate decreased [Recovered/Resolved]
  - Stress [Unknown]
  - Binge eating [Not Recovered/Not Resolved]
  - Asthenia [Not Recovered/Not Resolved]
  - White blood cell count decreased [Not Recovered/Not Resolved]
  - Walking aid user [Not Recovered/Not Resolved]
  - Myocardial necrosis marker increased [Not Recovered/Not Resolved]
  - Cardiac failure [Not Recovered/Not Resolved]
  - Respiratory tract infection [Not Recovered/Not Resolved]
  - Neck pain [Unknown]
  - Swelling face [Unknown]
  - Back pain [Not Recovered/Not Resolved]
  - Fatigue [Recovering/Resolving]
  - Myocardial infarction [Recovered/Resolved]
  - Hypotension [Unknown]
  - Weight increased [Not Recovered/Not Resolved]
  - Muscular weakness [Not Recovered/Not Resolved]

NARRATIVE: CASE EVENT DATE: 2016
